FAERS Safety Report 14200390 (Version 7)
Quarter: 2018Q2

REPORT INFORMATION
  Report Type: Spontaneous
  Country: US (occurrence: US)
  Receive Date: 20171117
  Receipt Date: 20180629
  Transmission Date: 20180711
  Serious: Yes (Other)
  Sender: FDA-Public Use
  Company Number: US-PFIZER INC-2017491349

PATIENT
  Age: 65 Year
  Sex: Female
  Weight: 52.61 kg

DRUGS (8)
  1. IBRANCE [Suspect]
     Active Substance: PALBOCICLIB
     Dosage: 100 MG, 3 WEEKS DAILY 1 WEEK WITH NOTHING
     Route: 048
     Dates: start: 20151118, end: 20161109
  2. IBRANCE [Suspect]
     Active Substance: PALBOCICLIB
     Indication: BREAST CANCER
     Dosage: 125 MG, DAILY
     Dates: start: 20141022
  3. SIMVASTATIN. [Concomitant]
     Active Substance: SIMVASTATIN
     Dosage: 1 TABLET(S) EVERY DAY
     Route: 048
     Dates: start: 20151119
  4. IBRANCE [Suspect]
     Active Substance: PALBOCICLIB
     Indication: INVASIVE LOBULAR BREAST CARCINOMA
     Dosage: 125 MG, UNK
  5. BIOTIN [Concomitant]
     Active Substance: BIOTIN
     Dosage: 1 MG, DAILY
     Route: 048
     Dates: start: 20151118
  6. DICLOFENAC SODIUM. [Concomitant]
     Active Substance: DICLOFENAC SODIUM
     Indication: ARTHRALGIA
     Dosage: ONE TABLET DAILY AS NEEDED
     Dates: start: 20141107
  7. MAGNESIUM /00123201/ [Concomitant]
     Dosage: UNK UNK, DAILY
     Route: 048
     Dates: start: 20151118
  8. LETROZOLE. [Suspect]
     Active Substance: LETROZOLE
     Indication: BREAST CANCER
     Dosage: 2.5 MG, ONCE A DAY
     Route: 048
     Dates: start: 20141107

REACTIONS (4)
  - Thrombosis [Unknown]
  - Visual impairment [Unknown]
  - Full blood count decreased [Unknown]
  - Optic nerve disorder [Unknown]

NARRATIVE: CASE EVENT DATE: 201412
